FAERS Safety Report 4267520-4 (Version None)
Quarter: 2004Q1

REPORT INFORMATION
  Report Type: 
  Country: None (occurrence: None)
  Receive Date: 20040109
  Receipt Date: 20030725
  Transmission Date: 20041129
  Serious: No
  Sender: FDA-Public Use
  Company Number: US-GLAXOSMITHKLINE-A0418955A

PATIENT
  Age: 82 Year
  Sex: Female

DRUGS (8)
  1. WELLBUTRIN [Suspect]
     Indication: DEPRESSION
     Dosage: 75MG TWICE PER DAY
     Route: 048
     Dates: start: 19960101
  2. TAMOFEN [Concomitant]
  3. FOSAMAX [Concomitant]
  4. LASIX [Concomitant]
  5. POTASSIUM [Concomitant]
  6. ZOCOR [Concomitant]
  7. ARICEPT [Concomitant]
  8. KLONOPIN [Concomitant]

REACTIONS (2)
  - CRYING [None]
  - TINNITUS [None]
